FAERS Safety Report 8162922-8 (Version None)
Quarter: 2012Q1

REPORT INFORMATION
  Report Type: 
  Country: None (occurrence: None)
  Receive Date: 20120224
  Receipt Date: 20120210
  Transmission Date: 20120608
  Serious: Yes (Other)
  Sender: FDA-Public Use
  Company Number: DK-AMGEN-DNKSP2012010619

PATIENT
  Age: 36 Year
  Sex: Male

DRUGS (5)
  1. FOLIC ACID [Concomitant]
     Dosage: 5 MG, EVERY 3 WEEKS
     Route: 048
  2. MANDOLGIN [Concomitant]
     Dosage: 50 MG, UNK
     Route: 048
  3. CODEINE SUL TAB [Concomitant]
     Dosage: 4 G MAX A DAY, AS NEEDED
     Route: 065
  4. ENBREL [Suspect]
     Indication: ANKYLOSING SPONDYLITIS
     Dosage: 50.0 MG, 1X/WK
     Route: 058
     Dates: start: 20080117
  5. METHOTREXATE [Concomitant]
     Dosage: 15 MG, 1X/DAY
     Route: 065

REACTIONS (3)
  - GRAND MAL CONVULSION [None]
  - LOSS OF CONSCIOUSNESS [None]
  - CONVULSION [None]
